FAERS Safety Report 4681903-X (Version None)
Quarter: 2005Q2

REPORT INFORMATION
  Report Type: 
  Country: None (occurrence: None)
  Receive Date: 20050602
  Receipt Date: 20050517
  Transmission Date: 20051028
  Serious: Yes (Hospitalization)
  Sender: FDA-Public Use
  Company Number: JP_050406317

PATIENT
  Age: 73 Year
  Sex: Female
  Weight: 46 kg

DRUGS (4)
  1. EVISTA [Suspect]
     Indication: OSTEOPOROSIS
     Dosage: 60 MG/1 DAY
     Dates: start: 20050215, end: 20050321
  2. ELCITONIN (ELCATONIN) [Concomitant]
  3. ASPIRIN [Concomitant]
  4. PRAVASTATIN [Concomitant]

REACTIONS (5)
  - CORONARY ARTERY OCCLUSION [None]
  - ELECTROCARDIOGRAM T WAVE INVERSION [None]
  - MYOCARDIAL INFARCTION [None]
  - SHOULDER PAIN [None]
  - TOOTHACHE [None]
